FAERS Safety Report 15181167 (Version 1)
Quarter: 2018Q3

REPORT INFORMATION
  Report Type: Report from Study
  Country: US (occurrence: US)
  Receive Date: 20180723
  Receipt Date: 20180723
  Transmission Date: 20181010
  Serious: No
  Sender: FDA-Public Use
  Company Number: US-SA-2018SA023898

PATIENT
  Age: 73 Year
  Sex: Female
  Weight: 59.5 kg

DRUGS (20)
  1. BLINDED FENOFIBRIC ACID [Suspect]
     Active Substance: FENOFIBRIC ACID
     Indication: HYPERCHOLESTEROLAEMIA
     Dosage: 1 ML,QOW
     Route: 058
     Dates: start: 20170220
  2. FISH OIL [Suspect]
     Active Substance: FISH OIL
     Indication: HYPERCHOLESTEROLAEMIA
     Dosage: 1 DF; TABLET,QD
     Route: 048
     Dates: start: 2012
  3. SUDAFED COMPOUND [Concomitant]
     Indication: RHINITIS ALLERGIC
     Dosage: 2 DF,QD
     Route: 048
     Dates: start: 1988
  4. MUCINEX [Concomitant]
     Active Substance: GUAIFENESIN
     Indication: COUGH
     Dosage: 1?2 TAB,PRN
     Route: 048
     Dates: start: 20170511
  5. VITAMIN B12 [Concomitant]
     Active Substance: CYANOCOBALAMIN
     Indication: VITAMIN SUPPLEMENTATION
     Dosage: 1 DF,QD
     Route: 048
     Dates: start: 2014
  6. COQ10 + D3 [Concomitant]
     Indication: VITAMIN SUPPLEMENTATION
     Dosage: 1 DF,QD
     Route: 048
     Dates: start: 2013
  7. TURMERIC [CURCUMA LONGA] [Concomitant]
     Dosage: 1 DF,QD
     Route: 048
     Dates: start: 2012
  8. BLINDED ALIROCUMAB [Suspect]
     Active Substance: ALIROCUMAB
     Indication: HYPERCHOLESTEROLAEMIA
     Dosage: 1 ML,QOW
     Route: 058
     Dates: start: 20170220
  9. METFORMIN [Concomitant]
     Active Substance: METFORMIN HYDROCHLORIDE
     Indication: TYPE 2 DIABETES MELLITUS
     Dosage: 500 MG,QD
     Route: 048
     Dates: start: 201510
  10. BLINDED NO STUDY DRUG GIVEN [Suspect]
     Active Substance: INVESTIGATIONAL PRODUCT
     Indication: HYPERCHOLESTEROLAEMIA
     Dosage: 1 ML,QOW
     Route: 058
     Dates: start: 20170220
  11. PRAVASTATIN SODIUM. [Suspect]
     Active Substance: PRAVASTATIN SODIUM
     Indication: HYPERCHOLESTEROLAEMIA
     Dosage: 20 MG,QD
     Route: 048
     Dates: start: 201610
  12. FLUTICASONE. [Concomitant]
     Active Substance: FLUTICASONE
     Indication: RHINITIS ALLERGIC
     Dosage: 2 SPRAYS,QD
     Route: 055
     Dates: start: 2009
  13. METFORMIN [Concomitant]
     Active Substance: METFORMIN HYDROCHLORIDE
     Dosage: 500 MG,QD
     Route: 048
     Dates: start: 2016
  14. LEVOTHYROXINE. [Concomitant]
     Active Substance: LEVOTHYROXINE
     Indication: HYPOTHYROIDISM
     Dosage: 75 UG,QD
     Route: 048
     Dates: start: 2014
  15. VITAMIN D3 [Concomitant]
     Active Substance: CHOLECALCIFEROL
     Indication: VITAMIN SUPPLEMENTATION
     Dosage: 1 DF,QD
     Route: 048
     Dates: start: 2013
  16. BLINDED ALIROCUMAB [Suspect]
     Active Substance: ALIROCUMAB
     Indication: HYPERCHOLESTEROLAEMIA
     Dosage: 1 ML,QOW
     Route: 058
     Dates: start: 20170220
  17. BLINDED RED YEAST RICE [Suspect]
     Active Substance: DIETARY SUPPLEMENT
     Indication: HYPERCHOLESTEROLAEMIA
     Dosage: 1 ML,QOW
     Route: 058
     Dates: start: 20170220
  18. BLINDED ALIROCUMAB [Suspect]
     Active Substance: ALIROCUMAB
     Indication: HYPERCHOLESTEROLAEMIA
     Dosage: 1 ML,QOW
     Route: 058
     Dates: start: 20170220
  19. BLINDED PLACEBO [Suspect]
     Active Substance: INVESTIGATIONAL PRODUCT
     Indication: HYPERCHOLESTEROLAEMIA
     Dosage: 1 ML,QOW
     Route: 058
     Dates: start: 20170220
  20. FEXOFENADINE [Concomitant]
     Active Substance: FEXOFENADINE\FEXOFENADINE HYDROCHLORIDE
     Indication: RHINITIS ALLERGIC
     Dosage: 180 MG,QD
     Route: 048
     Dates: start: 1988

REACTIONS (1)
  - Alanine aminotransferase increased [Recovered/Resolved]

NARRATIVE: CASE EVENT DATE: 20180122
